FAERS Safety Report 8536117-X (Version None)
Quarter: 2012Q3

REPORT INFORMATION
  Report Type: 
  Country: None (occurrence: None)
  Receive Date: 20120725
  Receipt Date: 20120717
  Transmission Date: 20120928
  Serious: Yes (Hospitalization, Other)
  Sender: FDA-Public Use
  Company Number: JP-ASTELLAS-2011JP001066

PATIENT
  Age: 60 Year
  Sex: Male

DRUGS (6)
  1. METHYLPREDNISOLONE [Concomitant]
     Indication: RENAL TRANSPLANT
     Route: 065
  2. SIMULECT [Concomitant]
     Indication: RENAL TRANSPLANT
     Route: 042
  3. CYCLOSPORINE [Concomitant]
     Route: 065
  4. DSG [Concomitant]
     Route: 065
  5. PROGRAF [Suspect]
     Indication: RENAL TRANSPLANT
     Route: 065
  6. CELLCEPT [Concomitant]
     Indication: RENAL TRANSPLANT
     Route: 048

REACTIONS (3)
  - FOCAL SEGMENTAL GLOMERULOSCLEROSIS [None]
  - ENTERITIS INFECTIOUS [None]
  - NEPHROPATHY TOXIC [None]
